FAERS Safety Report 5656289-4 (Version None)
Quarter: 2008Q1

REPORT INFORMATION
  Report Type: 
  Country: None (occurrence: None)
  Receive Date: 20080309
  Receipt Date: 20070904
  Transmission Date: 20080703
  Serious: No
  Sender: FDA-Public Use
  Company Number: US-BAYER-200711714BCC

PATIENT
  Age: 63 Year
  Sex: Male
  Weight: 79 kg

DRUGS (24)
  1. ALEVE [Suspect]
     Indication: MUSCULOSKELETAL PAIN
     Dosage: TOTAL DAILY DOSE: 220 MG  UNIT DOSE: 220 MG
     Route: 048
     Dates: start: 20070401
  2. ALEVE [Suspect]
     Route: 048
     Dates: start: 20070529
  3. OXYBUTYNIN CHLORIDE [Suspect]
     Indication: URINARY TRACT DISORDER
     Route: 048
  4. GLUCOSAMINE [Concomitant]
  5. FISH OIL [Concomitant]
  6. TRENTAL [Concomitant]
  7. HYDROCHLOROTHIAZIDE [Concomitant]
  8. CRESTOR [Concomitant]
  9. PLAVIX [Concomitant]
  10. PRILOSEC [Concomitant]
  11. METOPROLOL TARTRATE [Concomitant]
  12. RANITIDINE [Concomitant]
  13. SAW PALMETTO [Concomitant]
  14. MULTI-VITAMIN [Concomitant]
  15. COLOSTRUM [Concomitant]
  16. NOVOLOG [Concomitant]
  17. ASPIRIN [Concomitant]
  18. ERYTHROMYCIN [Concomitant]
  19. COQ10 [Concomitant]
  20. ENALAPRIL MALEATE [Concomitant]
  21. FLAX SEED [Concomitant]
  22. OMEGA 3 [Concomitant]
  23. GRAPE SEED EXTRACT [Concomitant]
  24. EYE DROPS [Concomitant]
     Indication: GLAUCOMA

REACTIONS (2)
  - DRY EYE [None]
  - DRY MOUTH [None]
